FAERS Safety Report 10423048 (Version 1)
Quarter: 2014Q3

REPORT INFORMATION
  Report Type: Spontaneous
  Country: US (occurrence: None)
  Receive Date: 20140709
  Receipt Date: 20140709
  Transmission Date: 20150326
  Serious: Yes (Other)
  Sender: FDA-Public Use
  Company Number: PHEH2013US024115

PATIENT
  Age: 47 Year
  Sex: Female
  Weight: 67.6 kg

DRUGS (3)
  1. GLEEVEC [Suspect]
     Active Substance: IMATINIB MESYLATE
     Indication: GASTROINTESTINAL STROMAL TUMOUR
  2. COMPAZINE/PROCHLORPERAZINE MALEATE (PROCHLORPERAZINE MALEATE) [Concomitant]
  3. SUTENT [Suspect]
     Active Substance: SUNITINIB MALATE
     Indication: GASTROINTESTINAL STROMAL TUMOUR
     Dosage: 50 MG, DAILY (28 DAYS ON 14 DAYS OFF)?

REACTIONS (8)
  - Gastrointestinal stromal tumour [None]
  - Anorectal discomfort [None]
  - Neuropathy peripheral [None]
  - Frustration [None]
  - Alopecia [None]
  - Blood pressure increased [None]
  - Malignant neoplasm progression [None]
  - Dysgeusia [None]

NARRATIVE: CASE EVENT DATE: 20131104
